FAERS Safety Report 7414210-2 (Version None)
Quarter: 2011Q2

REPORT INFORMATION
  Report Type: 
  Country: None (occurrence: None)
  Receive Date: 20110414
  Receipt Date: 20110407
  Transmission Date: 20111010
  Serious: Yes (Other)
  Sender: FDA-Public Use
  Company Number: US-TEVA-273054USA

PATIENT
  Age: 61 Year
  Sex: Female

DRUGS (1)
  1. VERAPAMIL [Suspect]
     Indication: SUPRAVENTRICULAR TACHYCARDIA

REACTIONS (2)
  - ARRHYTHMIA SUPRAVENTRICULAR [None]
  - DRUG INEFFECTIVE [None]
